FAERS Safety Report 20853406 (Version 1)
Quarter: 2022Q2

REPORT INFORMATION
  Report Type: Spontaneous
  Country: US (occurrence: None)
  Receive Date: 20220518
  Receipt Date: 20220518
  Transmission Date: 20220721
  Serious: Yes (Hospitalization)
  Sender: FDA-Public Use
  Company Number: None

PATIENT
  Sex: Female

DRUGS (21)
  1. VANCOMYCIN [Suspect]
     Active Substance: VANCOMYCIN
  2. SOMA COMPOUND [Concomitant]
     Active Substance: ASPIRIN\CARISOPRODOL
  3. MIDODRINE HYDROCHLORIDE [Concomitant]
     Active Substance: MIDODRINE HYDROCHLORIDE
  4. TRAZODONE HCL [Concomitant]
     Active Substance: TRAZODONE HYDROCHLORIDE
  5. LORAZEPAM [Concomitant]
     Active Substance: LORAZEPAM
  6. ONDANSETRON HCL [Concomitant]
     Active Substance: ONDANSETRON HYDROCHLORIDE
  7. IRON DEXTRAN [Concomitant]
     Active Substance: IRON DEXTRAN
  8. PLAQUENIL [Concomitant]
     Active Substance: HYDROXYCHLOROQUINE SULFATE
  9. PROMETHAZINE HYDROCHLORIDE [Concomitant]
     Active Substance: PROMETHAZINE HYDROCHLORIDE
  10. PROMETHAZINE HYDROCHLORIDE [Concomitant]
     Active Substance: PROMETHAZINE HYDROCHLORIDE
  11. VIVELLE-DOT [Concomitant]
     Active Substance: ESTRADIOL
  12. XIFAXAN [Concomitant]
     Active Substance: RIFAXIMIN
  13. LOVENOX [Concomitant]
     Active Substance: ENOXAPARIN SODIUM
  14. COUMADIN [Concomitant]
     Active Substance: WARFARIN SODIUM
  15. AIMOVIG [Concomitant]
     Active Substance: ERENUMAB-AOOE
  16. WARFARIN SODIUM [Concomitant]
     Active Substance: WARFARIN SODIUM
  17. KETOROLAC [Concomitant]
     Active Substance: KETOROLAC TROMETHAMINE
  18. DIPHENHYDRAMINE [Concomitant]
     Active Substance: DIPHENHYDRAMINE
  19. ONDANSETRON [Concomitant]
     Active Substance: ONDANSETRON
  20. EPINEPHRINE [Concomitant]
     Active Substance: EPINEPHRINE
  21. EPINEPHRINE [Concomitant]
     Active Substance: EPINEPHRINE

REACTIONS (1)
  - Malnutrition [None]
